FAERS Safety Report 25554074 (Version 1)
Quarter: 2025Q3

REPORT INFORMATION
  Report Type: Spontaneous
  Country: EU (occurrence: EU)
  Receive Date: 20250715
  Receipt Date: 20250715
  Transmission Date: 20251021
  Serious: Yes (Other)
  Sender: RANBAXY
  Company Number: EU-SUN PHARMACEUTICAL INDUSTRIES LTD-2025RR-516832

PATIENT
  Age: 43 Year
  Sex: Male

DRUGS (5)
  1. FLUOXETINE [Suspect]
     Active Substance: FLUOXETINE HYDROCHLORIDE
     Indication: Wrong patient
     Route: 048
     Dates: start: 20250215, end: 20250215
  2. LORAZEPAM [Suspect]
     Active Substance: LORAZEPAM
     Indication: Wrong patient
     Route: 048
     Dates: start: 20250215, end: 20250215
  3. CLOZAPINE [Suspect]
     Active Substance: CLOZAPINE
     Indication: Wrong patient
     Route: 048
     Dates: start: 20250215, end: 20250215
  4. TRIHEXYPHENIDYL HYDROCHLORIDE [Suspect]
     Active Substance: TRIHEXYPHENIDYL HYDROCHLORIDE
     Indication: Wrong patient
     Route: 048
     Dates: start: 20250215, end: 20250215
  5. ACEBUTOLOL [Suspect]
     Active Substance: ACEBUTOLOL
     Indication: Wrong patient
     Route: 048
     Dates: start: 20250215, end: 20250215

REACTIONS (4)
  - Hypotension [Recovered/Resolved]
  - Fall [Recovered/Resolved]
  - Bradycardia [Recovered/Resolved]
  - Wrong patient [Recovered/Resolved]

NARRATIVE: CASE EVENT DATE: 20250215
